FAERS Safety Report 6234307-2 (Version None)
Quarter: 2009Q2

REPORT INFORMATION
  Report Type: 
  Country: None (occurrence: None)
  Receive Date: 20090618
  Receipt Date: 20090430
  Transmission Date: 20091009
  Serious: No
  Sender: FDA-Public Use
  Company Number: US-BRISTOL-MYERS SQUIBB COMPANY-14609010

PATIENT
  Age: 10 Year
  Sex: Female

DRUGS (1)
  1. ABILIFY [Suspect]
     Indication: BIPOLAR DISORDER
     Dosage: DAY 1 = 1/2 TABLET DAY 2 AND 3= WHOLE 10MG DISCMELT

REACTIONS (1)
  - DYSTONIA [None]
